FAERS Safety Report 19652260 (Version 3)
Quarter: 2021Q3

REPORT INFORMATION
  Report Type: Spontaneous
  Country: US (occurrence: US)
  Receive Date: 20210803
  Receipt Date: 20210831
  Transmission Date: 20211014
  Serious: Yes (Disabling)
  Sender: FDA-Public Use
  Company Number: US-PFIZER INC-2021476315

PATIENT
  Age: 67 Year
  Sex: Female
  Weight: 45.13 kg

DRUGS (16)
  1. LIDOCAINE HCL [Suspect]
     Active Substance: LIDOCAINE HYDROCHLORIDE
     Indication: PAIN
     Dosage: UNK
     Route: 058
     Dates: start: 20180107, end: 2021
  2. LIDOCAINE HCL [Suspect]
     Active Substance: LIDOCAINE HYDROCHLORIDE
     Dosage: ONE TIME 2 INJECTION
     Route: 058
     Dates: start: 20180107, end: 20180107
  3. BACLOFEN. [Concomitant]
     Active Substance: BACLOFEN
     Dosage: 20 MG
     Dates: start: 2020
  4. BUPIVACAINE HCL [Suspect]
     Active Substance: BUPIVACAINE HYDROCHLORIDE
     Dosage: UNK UNK, SINGLE
     Route: 058
  5. REMERON [Concomitant]
     Active Substance: MIRTAZAPINE
     Indication: SLEEP DISORDER
     Dosage: 7.5 MG, 1X/DAY
     Dates: start: 2013
  6. LYRICA CR [Concomitant]
     Active Substance: PREGABALIN
     Indication: FIBROMYALGIA
     Dosage: 75 MG, 3X/DAY
     Dates: start: 2012
  7. REMERON [Concomitant]
     Active Substance: MIRTAZAPINE
     Dosage: 7.5 MG, AS NEEDED
  8. VALIUM [Concomitant]
     Active Substance: DIAZEPAM
     Indication: FLUSHING
     Dosage: 2 MG
     Route: 048
     Dates: start: 2016
  9. VALIUM [Concomitant]
     Active Substance: DIAZEPAM
     Dosage: 1 MG, 1X/DAY
  10. ZOLPIDEM [Concomitant]
     Active Substance: ZOLPIDEM TARTRATE
     Dosage: 5 MG, AS NEEDED
     Dates: start: 202107
  11. BACLOFEN. [Concomitant]
     Active Substance: BACLOFEN
     Indication: TENSION
     Dosage: 10 MG, 1X/DAY
     Dates: start: 2020
  12. PREGNENOLONE [Concomitant]
     Active Substance: PREGNENOLONE
     Dosage: 40 MG, 1X/DAY
  13. FLUDROCORTISONE [Concomitant]
     Active Substance: FLUDROCORTISONE
     Dosage: UNK
  14. CANNABIS [Suspect]
     Active Substance: CANNABIS SATIVA SUBSP. INDICA TOP
     Route: 048
  15. FLUDROCORTISONE [Concomitant]
     Active Substance: FLUDROCORTISONE
     Indication: MUSCLE TIGHTNESS
     Dosage: 0.1 MG, 1X/DAY (2 TABS EACH AM)
  16. LYRICA [Concomitant]
     Active Substance: PREGABALIN
     Indication: FIBROMYALGIA
     Dosage: 75 MG, 3X/DAY
     Dates: start: 2021

REACTIONS (8)
  - Frustration tolerance decreased [Unknown]
  - Pain [Not Recovered/Not Resolved]
  - Fatigue [Unknown]
  - Depressed mood [Unknown]
  - Stress [Unknown]
  - Insomnia [Unknown]
  - Cognitive disorder [Unknown]
  - Occipital neuralgia [Not Recovered/Not Resolved]

NARRATIVE: CASE EVENT DATE: 20180707
